FAERS Safety Report 5806909-6 (Version None)
Quarter: 2008Q3

REPORT INFORMATION
  Report Type: 
  Country: None (occurrence: None)
  Receive Date: 20080711
  Receipt Date: 20080702
  Transmission Date: 20090109
  Serious: Yes (Death, Other)
  Sender: FDA-Public Use
  Company Number: NL-JNJFOC-20080700172

PATIENT
  Sex: Female
  Weight: 45 kg

DRUGS (3)
  1. REOPRO [Suspect]
     Indication: CATHETERISATION CARDIAC
  2. HEPARIN [Suspect]
     Indication: CORONARY ANGIOPLASTY
     Route: 042
  3. ASCAL [Concomitant]
     Indication: CORONARY ARTERY DISEASE
     Route: 048

REACTIONS (3)
  - PERICARDIAL EFFUSION [None]
  - RETROPERITONEAL HAEMORRHAGE [None]
  - SYNCOPE VASOVAGAL [None]
